FAERS Safety Report 5471623-6 (Version None)
Quarter: 2007Q3

REPORT INFORMATION
  Report Type: 
  Country: None (occurrence: None)
  Receive Date: 20070928
  Receipt Date: 20070212
  Transmission Date: 20080115
  Serious: No
  Sender: FDA-Public Use
  Company Number: US-BRISTOL-MYERS SQUIBB COMPANY-13676986

PATIENT
  Age: 85 Year
  Sex: Male
  Weight: 88 kg

DRUGS (13)
  1. DEFINITY [Suspect]
     Indication: ECHOCARDIOGRAM
     Route: 040
     Dates: start: 20070212
  2. ASPIRIN [Concomitant]
  3. COUMADIN [Concomitant]
  4. ZESTRIL [Concomitant]
  5. COREG [Concomitant]
  6. LANOXIN [Concomitant]
  7. LASIX [Concomitant]
  8. IMDUR [Concomitant]
  9. ALDACTONE [Concomitant]
  10. FLOMAX [Concomitant]
  11. NITROGLYCERIN [Concomitant]
  12. PRILOSEC [Concomitant]
  13. LOPID [Concomitant]

REACTIONS (1)
  - BACK PAIN [None]
